FAERS Safety Report 5386640-4 (Version None)
Quarter: 2007Q3

REPORT INFORMATION
  Report Type: 
  Country: None (occurrence: None)
  Receive Date: 20070713
  Receipt Date: 20070706
  Transmission Date: 20080115
  Serious: Yes (Hospitalization)
  Sender: FDA-Public Use
  Company Number: FR-ELI_LILLY_AND_COMPANY-FR200704005171

PATIENT
  Age: 74 Year
  Sex: Female

DRUGS (5)
  1. NOVATREX [Concomitant]
     Indication: TEMPORAL ARTERITIS
     Dosage: 7.5 MG, WEEKLY (1/W)
     Route: 048
     Dates: start: 20070101, end: 20070415
  2. CORTANCYL [Concomitant]
     Route: 048
  3. OGAST [Concomitant]
     Route: 048
  4. DIANTALVIC [Concomitant]
  5. FORTEO [Suspect]
     Indication: OSTEOPOROSIS
     Dosage: 20 UG, DAILY (1/D)
     Route: 058
     Dates: start: 20070131, end: 20070704

REACTIONS (4)
  - ANOREXIA [None]
  - FATIGUE [None]
  - SPINAL FRACTURE [None]
  - WEIGHT DECREASED [None]
